FAERS Safety Report 5066241-8 (Version None)
Quarter: 2006Q3

REPORT INFORMATION
  Report Type: 
  Country: None (occurrence: None)
  Receive Date: 20060801
  Receipt Date: 20060727
  Transmission Date: 20061208
  Serious: Yes (Hospitalization)
  Sender: FDA-Public Use
  Company Number: AU-BRISTOL-MYERS SQUIBB COMPANY-13456660

PATIENT
  Age: 71 Year
  Sex: Male

DRUGS (4)
  1. AVAPRO-HCT TABS 300 MG/12.5 MG [Suspect]
  2. ASTRIX [Suspect]
  3. LIPITOR [Suspect]
     Route: 048
  4. NORVASC [Suspect]
     Indication: ESSENTIAL HYPERTENSION
     Route: 048

REACTIONS (11)
  - ATRIAL FIBRILLATION [None]
  - CEREBROVASCULAR ACCIDENT [None]
  - COUGH [None]
  - DEHYDRATION [None]
  - HYPOTENSION [None]
  - NOCTURIA [None]
  - OEDEMA PERIPHERAL [None]
  - PARAESTHESIA [None]
  - PERIPHERAL ISCHAEMIA [None]
  - TACHYCARDIA [None]
  - THIRST [None]
